FAERS Safety Report 5925908-7 (Version None)
Quarter: 2008Q4

REPORT INFORMATION
  Report Type: 
  Country: None (occurrence: None)
  Receive Date: 20081021
  Receipt Date: 20081017
  Transmission Date: 20090506
  Serious: Yes (Hospitalization)
  Sender: FDA-Public Use
  Company Number: FR-WYE-G02131908

PATIENT
  Sex: Male

DRUGS (12)
  1. RAPAMUNE [Suspect]
     Indication: KAPOSI'S SARCOMA
     Dosage: 3 MG TOTAL DAILY
     Route: 048
     Dates: start: 20080828, end: 20080904
  2. RAPAMUNE [Suspect]
     Dosage: 2 MG TOTAL DAILY
     Route: 048
     Dates: start: 20080905
  3. IKOREL [Concomitant]
     Dosage: 40 MG TOTAL DAILY
     Route: 048
  4. TENORMIN [Concomitant]
     Dosage: 100 MG TOTAL DAILY
  5. NOVONORM [Concomitant]
     Dosage: 1 MG TOTAL DAILY
     Route: 048
  6. DIFFU K [Concomitant]
     Route: 048
  7. ZYLORIC [Concomitant]
     Route: 048
  8. MOPRAL [Concomitant]
     Route: 048
  9. IMOVANE [Concomitant]
     Route: 048
  10. SOLUPRED [Concomitant]
     Route: 048
  11. CELLCEPT [Suspect]
     Indication: PROPHYLAXIS AGAINST TRANSPLANT REJECTION
     Route: 048
     Dates: end: 20080910
  12. PLAVIX [Concomitant]
     Route: 048

REACTIONS (4)
  - ABDOMINAL PAIN [None]
  - APHTHOUS STOMATITIS [None]
  - DEHYDRATION [None]
  - DIARRHOEA [None]
